FAERS Safety Report 8161902-6 (Version None)
Quarter: 2012Q1

REPORT INFORMATION
  Report Type: 
  Country: None (occurrence: None)
  Receive Date: 20120224
  Receipt Date: 20111109
  Transmission Date: 20120608
  Serious: No
  Sender: FDA-Public Use
  Company Number: US-BRISTOL-MYERS SQUIBB COMPANY-16228595

PATIENT
  Age: 83 Year
  Sex: Female
  Weight: 54 kg

DRUGS (6)
  1. METFORMIN HCL [Suspect]
     Dosage: DOSE REDUCED TO 1000MG
  2. AVAPRO [Concomitant]
  3. METOPROLOL TARTRATE [Concomitant]
  4. AMLODIPINE [Concomitant]
  5. HYDROCHLOROTHIAZIDE [Concomitant]
  6. GLIPIZIDE [Concomitant]

REACTIONS (2)
  - WEIGHT DECREASED [None]
  - DIARRHOEA [None]
